FAERS Safety Report 10100880 (Version 1)
Quarter: 2014Q2

REPORT INFORMATION
  Report Type: Spontaneous
  Country: US (occurrence: US)
  Receive Date: 20140423
  Receipt Date: 20140423
  Transmission Date: 20141212
  Serious: No
  Sender: FDA-Public Use
  Company Number: US-009507513-1404USA009394

PATIENT
  Age: 72 Year
  Sex: Male

DRUGS (1)
  1. DULERA [Suspect]
     Indication: EMPHYSEMA
     Dosage: 2 DF. 2 PUFF ONCE OR TWICE A DAY
     Route: 055
     Dates: start: 201104

REACTIONS (4)
  - Dyspnoea [Recovered/Resolved]
  - Product container issue [Unknown]
  - Asthenia [Recovered/Resolved]
  - Off label use [Unknown]
